FAERS Safety Report 10548200 (Version 1)
Quarter: 2014Q4

REPORT INFORMATION
  Report Type: Spontaneous
  Country: US (occurrence: None)
  Receive Date: 20141027
  Receipt Date: 20141027
  Transmission Date: 20150529
  Serious: Yes (Life-Threatening, Disabling)
  Sender: FDA-Public Use
  Company Number: None

PATIENT
  Age: 47 Year
  Sex: Female
  Weight: 48.08 kg

DRUGS (3)
  1. CLONAZEPAM 1MG [Suspect]
     Active Substance: CLONAZEPAM
     Indication: MAJOR DEPRESSION
     Dosage: 9 WEEKS BEFORE TAPERING; 1 PILL THEN 2 PILLS
     Route: 048
  2. CLONAZEPAM 1MG [Suspect]
     Active Substance: CLONAZEPAM
     Indication: INSOMNIA
     Dosage: 9 WEEKS BEFORE TAPERING; 1 PILL THEN 2 PILLS
     Route: 048
  3. CLONAZEPAM 1MG [Suspect]
     Active Substance: CLONAZEPAM
     Indication: ANXIETY
     Dosage: 9 WEEKS BEFORE TAPERING; 1 PILL THEN 2 PILLS
     Route: 048

REACTIONS (21)
  - Headache [None]
  - Decreased appetite [None]
  - Disturbance in attention [None]
  - Depressed mood [None]
  - Feeling abnormal [None]
  - Dissociation [None]
  - Paraesthesia [None]
  - Dysuria [None]
  - Anxiety [None]
  - Anhedonia [None]
  - Chills [None]
  - Amnesia [None]
  - Aphonia [None]
  - Pruritus [None]
  - Hypoaesthesia [None]
  - Pain [None]
  - Bladder pain [None]
  - Nightmare [None]
  - Burning sensation [None]
  - Weight decreased [None]
  - Oropharyngeal pain [None]

NARRATIVE: CASE EVENT DATE: 20140624
